FAERS Safety Report 10273573 (Version 1)
Quarter: 2014Q2

REPORT INFORMATION
  Report Type: Spontaneous
  Country: FR (occurrence: None)
  Receive Date: 20140630
  Receipt Date: 20140630
  Transmission Date: 20141212
  Serious: Yes (Life-Threatening)
  Sender: FDA-Public Use
  Company Number: FK201402479

PATIENT
  Age: 65 Year
  Sex: Female

DRUGS (5)
  1. ROCURONIUM [Suspect]
     Indication: INDUCTION OF ANAESTHESIA
  2. MIDAZOLAM (MIDAZOLAM) [Concomitant]
  3. SUFENTANIL (SUDENTANIL) [Concomitant]
  4. PROPOFOL (PROPOFOL) [Concomitant]
  5. KETAMINE (KETAMINE) [Concomitant]

REACTIONS (6)
  - Hypotension [None]
  - Sinus tachycardia [None]
  - Bronchospasm [None]
  - Oxygen saturation decreased [None]
  - Hypocapnia [None]
  - Anaphylactic reaction [None]
